FAERS Safety Report 4414179-9 (Version None)
Quarter: 2004Q3

REPORT INFORMATION
  Report Type: 
  Country: None (occurrence: None)
  Receive Date: 20040728
  Receipt Date: 20040721
  Transmission Date: 20050211
  Serious: Yes (Hospitalization)
  Sender: FDA-Public Use
  Company Number: GBWYE748310MAY04

PATIENT
  Age: 31 Year
  Sex: Female

DRUGS (2)
  1. EFFEXOR XR [Suspect]
     Indication: DEPRESSION
     Dosage: 150 MG 1X PER 1 DAY ORAL
     Route: 048
     Dates: start: 20031215, end: 20031219
  2. EFFEXOR [Concomitant]

REACTIONS (2)
  - CONVERSION DISORDER [None]
  - GRAND MAL CONVULSION [None]
